FAERS Safety Report 7071552-0 (Version None)
Quarter: 2010Q4

REPORT INFORMATION
  Report Type: 
  Country: None (occurrence: None)
  Receive Date: 20101029
  Receipt Date: 20090922
  Transmission Date: 20110411
  Serious: No
  Sender: FDA-Public Use
  Company Number: A0808476A

PATIENT
  Age: 72 Year
  Sex: Female

DRUGS (5)
  1. ADVAIR DISKUS 100/50 [Suspect]
     Indication: CHRONIC OBSTRUCTIVE PULMONARY DISEASE
     Dosage: 1PUFF TWICE PER DAY
     Route: 055
     Dates: start: 20090815, end: 20090820
  2. ATENOLOL [Concomitant]
  3. TRIAMTERENE AND HYDROCHLOROTHIAZIDE [Concomitant]
  4. LEVOTHYROXINE SODIUM [Concomitant]
  5. HYDRALAZINE [Concomitant]

REACTIONS (3)
  - COUGH [None]
  - DYSPHONIA [None]
  - THROAT IRRITATION [None]
